FAERS Safety Report 12471953 (Version 5)
Quarter: 2016Q3

REPORT INFORMATION
  Report Type: Report from Study
  Country: BR (occurrence: BR)
  Receive Date: 20160616
  Receipt Date: 20160726
  Transmission Date: 20161109
  Serious: Yes (Death, Other)
  Sender: FDA-Public Use
  Company Number: BR-JNJFOC-20160610480

PATIENT
  Age: 67 Year
  Sex: Male

DRUGS (5)
  1. CORISTINA [Concomitant]
     Route: 065
  2. IMBRUVICA [Suspect]
     Active Substance: IBRUTINIB
     Indication: CHRONIC LYMPHOCYTIC LEUKAEMIA
     Route: 048
     Dates: start: 20160429, end: 20160715
  3. ALLOPURINOL. [Concomitant]
     Active Substance: ALLOPURINOL
     Route: 065
  4. SIMVASTATIN. [Concomitant]
     Active Substance: SIMVASTATIN
     Route: 065
  5. PINAVERIUM BROMIDE [Concomitant]
     Active Substance: PINAVERIUM BROMIDE
     Route: 065

REACTIONS (6)
  - Pulmonary embolism [Fatal]
  - White blood cell count increased [Recovering/Resolving]
  - Dizziness [Recovered/Resolved]
  - Anxiety [Unknown]
  - Nasopharyngitis [Unknown]
  - Platelet count increased [Recovering/Resolving]
